FAERS Safety Report 8373822-2 (Version None)
Quarter: 2012Q2

REPORT INFORMATION
  Report Type: 
  Country: None (occurrence: None)
  Receive Date: 20120521
  Receipt Date: 20120508
  Transmission Date: 20120825
  Serious: Yes (Hospitalization)
  Sender: FDA-Public Use
  Company Number: US-ACTELION-A-NJ2012-64760

PATIENT

DRUGS (12)
  1. XANAX [Concomitant]
  2. ZOCOR [Concomitant]
  3. CALCIUM CHANNEL BLOCKERS [Concomitant]
  4. HEPARIN [Concomitant]
  5. ADVAIR DISKUS 100/50 [Concomitant]
  6. BISOPROLOL FUMARATE [Concomitant]
  7. PRILOSEC [Concomitant]
  8. TRACLEER [Suspect]
     Indication: PULMONARY ARTERIAL HYPERTENSION
     Dosage: UNK
     Route: 048
     Dates: start: 20100716
  9. FLONASE [Concomitant]
  10. CLARITIN [Concomitant]
  11. ALDACTONE [Concomitant]
  12. SILDENAFIL [Concomitant]

REACTIONS (7)
  - OXYGEN SATURATION DECREASED [None]
  - BRONCHITIS [None]
  - RHINITIS ALLERGIC [None]
  - CHRONIC OBSTRUCTIVE PULMONARY DISEASE [None]
  - DYSPNOEA [None]
  - COUGH [None]
  - RENAL FAILURE ACUTE [None]
